FAERS Safety Report 17529842 (Version 1)
Quarter: 2020Q1

REPORT INFORMATION
  Report Type: Spontaneous
  Country: US (occurrence: US)
  Receive Date: 20200312
  Receipt Date: 20200312
  Transmission Date: 20200409
  Serious: Yes (Hospitalization)
  Sender: FDA-Public Use
  Company Number: US-ZYDUS-048293

PATIENT
  Age: 55 Year
  Sex: Female

DRUGS (1)
  1. PHENTERMINE. [Suspect]
     Active Substance: PHENTERMINE
     Indication: WEIGHT DECREASED

REACTIONS (3)
  - Medication error [Unknown]
  - Intestinal ischaemia [Unknown]
  - Pseudomembranous colitis [Unknown]
